FAERS Safety Report 20535460 (Version 1)
Quarter: 2022Q1

REPORT INFORMATION
  Report Type: Spontaneous
  Country: BR (occurrence: BR)
  Receive Date: 20220302
  Receipt Date: 20220302
  Transmission Date: 20220423
  Serious: Yes (Hospitalization)
  Sender: FDA-Public Use
  Company Number: BR-JNJFOC-20210904975

PATIENT
  Age: 66 Year
  Sex: Female
  Weight: 53.5 kg

DRUGS (8)
  1. DARATUMUMAB [Suspect]
     Active Substance: DARATUMUMAB
     Indication: Plasma cell myeloma
     Dosage: 100 MG (20 MG/ML) VIAL 5 MG.?CYCLE: 1, DAY 1. DATE D1: 22-JUL-2021. DOSE 848 MG. TOTAL = 1000 ML
     Route: 042
     Dates: start: 20210722, end: 20210722
  2. VELCADE [Suspect]
     Active Substance: BORTEZOMIB
     Indication: Plasma cell myeloma
     Dosage: CYCLE: 1, DAY 1. DATE D1: 22-JUL-2021. DOSE 848 MG. TOTAL = 1000 ML
     Route: 065
  3. THALIDOMIDE [Suspect]
     Active Substance: THALIDOMIDE
     Indication: Plasma cell myeloma
     Dosage: CYCLE: 1, DAY 1. DATE D1: 22-JUL-2021. DOSE 848 MG. TOTAL = 1000 ML
     Route: 065
  4. DEXAMETHASONE [Suspect]
     Active Substance: DEXAMETHASONE
     Indication: Plasma cell myeloma
     Dosage: CYCLE: 1, DAY 1. DATE D1: 22-JUL-2021. DOSE 848 MG. TOTAL = 1000 ML
     Route: 065
  5. ACETAMINOPHEN [Concomitant]
     Active Substance: ACETAMINOPHEN
     Indication: Premedication
     Route: 048
  6. MONTELUKAST SODIUM [Concomitant]
     Active Substance: MONTELUKAST SODIUM
     Indication: Premedication
     Route: 048
  7. DIPHENHYDRAMINE [Concomitant]
     Active Substance: DIPHENHYDRAMINE
     Indication: Premedication
     Route: 042
  8. DECADRON [Concomitant]
     Active Substance: DEXAMETHASONE
     Indication: Premedication
     Route: 042

REACTIONS (4)
  - Tremor [Recovered/Resolved]
  - Chills [Recovered/Resolved]
  - Hypertension [Recovered/Resolved]
  - Infusion related reaction [Recovered/Resolved]

NARRATIVE: CASE EVENT DATE: 20210722
